FAERS Safety Report 24387568 (Version 1)
Quarter: 2024Q4

REPORT INFORMATION
  Report Type: Spontaneous
  Country: US (occurrence: None)
  Receive Date: 20241001
  Receipt Date: 20241001
  Transmission Date: 20250115
  Serious: Yes (Other)
  Sender: Public
  Company Number: None

PATIENT
  Age: 85 Year
  Sex: Female

DRUGS (1)
  1. ZEPOSIA [Suspect]
     Active Substance: OZANIMOD HYDROCHLORIDE
     Dosage: FREQUENCY : DAILY;?
     Route: 048
     Dates: start: 20240827, end: 20240916

REACTIONS (5)
  - Vision blurred [None]
  - Headache [None]
  - Influenza like illness [None]
  - Herpes zoster [None]
  - Adverse drug reaction [None]

NARRATIVE: CASE EVENT DATE: 20240916
